FAERS Safety Report 9209109 (Version 3)
Quarter: 2013Q3

REPORT INFORMATION
  Report Type: Report from Study
  Country: US (occurrence: US)
  Receive Date: 20130404
  Receipt Date: 20130830
  Transmission Date: 20140515
  Serious: Yes (Hospitalization)
  Sender: FDA-Public Use
  Company Number: PHEH2011US011913

PATIENT
  Age: 47 Year
  Sex: Female

DRUGS (4)
  1. EXTAVIA [Suspect]
     Indication: MULTIPLE SCLEROSIS
     Dosage: 0.25 MG, QOD
     Route: 058
     Dates: start: 20111208
  2. EXTAVIA [Suspect]
     Dosage: 1 ML, QOD
     Route: 058
  3. CYMBALTA [Concomitant]
     Indication: BACK PAIN
     Dosage: UNK UKN, UNK
  4. ANTIHISTAMINES [Concomitant]
     Indication: PRURITUS
     Dosage: UNK UKN, UNK

REACTIONS (25)
  - Cholelithiasis [Not Recovered/Not Resolved]
  - Pain [Recovered/Resolved]
  - Cholecystitis infective [Not Recovered/Not Resolved]
  - Agitation [Recovering/Resolving]
  - Contusion [Not Recovered/Not Resolved]
  - Tenderness [Recovered/Resolved]
  - Limb discomfort [Recovered/Resolved]
  - Musculoskeletal stiffness [Recovered/Resolved]
  - Neck pain [Recovered/Resolved]
  - Nervousness [Recovered/Resolved]
  - Hot flush [Recovered/Resolved]
  - Feeling hot [Recovering/Resolving]
  - Dyskinesia [Recovering/Resolving]
  - Feeling jittery [Recovered/Resolved]
  - Aphagia [Not Recovered/Not Resolved]
  - Back pain [Not Recovered/Not Resolved]
  - Fatigue [Recovered/Resolved]
  - Pain in extremity [Recovered/Resolved]
  - Affect lability [Recovered/Resolved]
  - Dizziness [Recovered/Resolved]
  - Injection site discolouration [Not Recovered/Not Resolved]
  - Anxiety [Recovering/Resolving]
  - Abdominal discomfort [Recovering/Resolving]
  - Injection site pain [Not Recovered/Not Resolved]
  - Skin discolouration [Not Recovered/Not Resolved]
